FAERS Safety Report 6272866-4 (Version None)
Quarter: 2009Q3

REPORT INFORMATION
  Report Type: 
  Country: None (occurrence: None)
  Receive Date: 20090717
  Receipt Date: 20090713
  Transmission Date: 20100115
  Serious: Yes (Life-Threatening, Hospitalization)
  Sender: FDA-Public Use
  Company Number: JP-AMGEN-US326418

PATIENT
  Sex: Male
  Weight: 66 kg

DRUGS (14)
  1. ENBREL [Suspect]
     Indication: RHEUMATOID ARTHRITIS
     Route: 058
     Dates: start: 20080226, end: 20090325
  2. AZULFIDINE EN-TABS [Concomitant]
     Indication: RHEUMATOID ARTHRITIS
     Route: 048
     Dates: start: 20080226, end: 20080325
  3. BAKUMONDOUTO [Concomitant]
     Route: 048
     Dates: start: 20080226, end: 20080325
  4. TAKEPRON [Concomitant]
     Route: 048
     Dates: start: 20080226, end: 20080325
  5. MARZULENE [Concomitant]
     Route: 048
     Dates: start: 20080226, end: 20080325
  6. PYRIDOXAL PHOSPHATE [Concomitant]
     Indication: PROPHYLAXIS
     Route: 048
  7. LACTOBAC [Concomitant]
     Route: 048
     Dates: start: 20080226, end: 20080325
  8. DOXAZOSIN MESILATE [Concomitant]
     Route: 048
     Dates: start: 20080226, end: 20080325
  9. MAGNESIUM OXIDE [Concomitant]
     Route: 048
     Dates: start: 20080226, end: 20080325
  10. NORVASC [Concomitant]
     Route: 048
     Dates: start: 20080226, end: 20080325
  11. FERRUM [Concomitant]
     Route: 048
     Dates: start: 20080226, end: 20080325
  12. NEOISCOTIN [Concomitant]
     Indication: PROPHYLAXIS
     Dosage: 400 MG/DAY
     Route: 048
     Dates: start: 20080226, end: 20080325
  13. PREDNISOLONE [Concomitant]
     Indication: RHEUMATOID ARTHRITIS
     Route: 048
     Dates: start: 20080226, end: 20080325
  14. PURSENNID [Concomitant]
     Route: 048
     Dates: start: 20080226, end: 20080325

REACTIONS (8)
  - ABDOMINAL PAIN [None]
  - ASCITES [None]
  - ENTERITIS [None]
  - HERPES OESOPHAGITIS [None]
  - ILEUS [None]
  - PANCREATITIS ACUTE [None]
  - PULMONARY ALVEOLAR HAEMORRHAGE [None]
  - VASCULITIS [None]
